FAERS Safety Report 4826852-9 (Version None)
Quarter: 2005Q4

REPORT INFORMATION
  Report Type: 
  Country: None (occurrence: None)
  Receive Date: 20051014
  Receipt Date: 20050719
  Transmission Date: 20060501
  Serious: No
  Sender: FDA-Public Use
  Company Number: 2005SP001957

PATIENT
  Age: 83 Year
  Sex: Female
  Weight: 64.4108 kg

DRUGS (8)
  1. LUNESTA [Suspect]
     Indication: INSOMNIA
     Dosage: 1 MG;HS;ORAL
     Route: 048
     Dates: start: 20050714, end: 20050701
  2. PRINIVIL [Concomitant]
  3. NORVASC [Concomitant]
  4. ACTZ [Concomitant]
  5. PRAVACHOL [Concomitant]
  6. VITAMINS [Concomitant]
  7. PAXIL [Concomitant]
  8. LUNESTA [Suspect]
     Indication: INSOMNIA
     Dosage: 2 MG;HS;ORAL

REACTIONS (2)
  - DRUG INEFFECTIVE [None]
  - MIDDLE INSOMNIA [None]
